FAERS Safety Report 4557005-X (Version None)
Quarter: 2005Q1

REPORT INFORMATION
  Report Type: 
  Country: None (occurrence: None)
  Receive Date: 20050118
  Receipt Date: 20050105
  Transmission Date: 20050727
  Serious: Yes (Disabling)
  Sender: FDA-Public Use
  Company Number: 2005006853

PATIENT
  Age: 49 Year
  Sex: Female

DRUGS (4)
  1. ZARONTIN [Suspect]
     Indication: ILL-DEFINED DISORDER
     Dosage: 250 MG, ORAL
     Route: 048
     Dates: start: 19910315, end: 20041023
  2. PHENOBARBITAL TAB [Suspect]
     Indication: ILL-DEFINED DISORDER
     Dosage: 50 MG, ORAL
     Route: 048
     Dates: start: 19810301, end: 20041108
  3. PHENYTOIN [Concomitant]
  4. CLOBAZAM (CLOBAZAM) [Concomitant]

REACTIONS (1)
  - CEREBELLAR ATROPHY [None]
